FAERS Safety Report 8816613 (Version 1)
Quarter: 2012Q4

REPORT INFORMATION
  Report Type: Spontaneous
  Country: US (occurrence: None)
  Receive Date: 20120928
  Receipt Date: 20120928
  Transmission Date: 20130627
  Serious: Yes (Hospitalization)
  Sender: FDA-Public Use
  Company Number: 139446

PATIENT
  Age: 24 Year
  Sex: Male

DRUGS (2)
  1. ADRIAMYCIN [Suspect]
     Indication: HODGKIN^S LYMPHOMA
     Dosage: 25mg/m2 or 35 mg/m2 on day 1
  2. ETOPOSIDE [Suspect]
     Dosage: 100mg/m2 (standard) or 200mg/m2 (escalated)

REACTIONS (1)
  - Osteonecrosis [None]
